FAERS Safety Report 7903440-9 (Version None)
Quarter: 2011Q4

REPORT INFORMATION
  Report Type: 
  Country: None (occurrence: None)
  Receive Date: 20111109
  Receipt Date: 20100311
  Transmission Date: 20120403
  Serious: Yes (Other)
  Sender: FDA-Public Use
  Company Number: GB-B.I. PHARMACEUTICALS,INC./RIDGEFIELD-2008-UK-00721UK

PATIENT
  Sex: Female

DRUGS (2)
  1. VIRAMUNE [Suspect]
     Indication: HIV INFECTION
     Dosage: 200 MG
     Dates: start: 20070816, end: 20070830
  2. KIVEXA [Suspect]

REACTIONS (3)
  - ABORTION INDUCED [None]
  - RASH [None]
  - MATERNAL EXPOSURE DURING PREGNANCY [None]
